FAERS Safety Report 4420895-5 (Version None)
Quarter: 2004Q3

REPORT INFORMATION
  Report Type: 
  Country: None (occurrence: None)
  Receive Date: 20040809
  Receipt Date: 20040729
  Transmission Date: 20050211
  Serious: Yes (Hospitalization)
  Sender: FDA-Public Use
  Company Number: US-ROCHE-376363

PATIENT
  Age: 50 Year
  Sex: Male
  Weight: 113.4 kg

DRUGS (9)
  1. PEGASYS [Suspect]
     Indication: HEPATITIS C
     Route: 058
     Dates: start: 20030313, end: 20040226
  2. COPEGUS [Suspect]
     Indication: HEPATITIS C
     Route: 048
     Dates: start: 20030313, end: 20040226
  3. FELODIPINE [Concomitant]
  4. TRAZODONE HCL [Concomitant]
  5. TOPIRMATE [Concomitant]
  6. QUETIAPINE [Concomitant]
  7. OLANZAPINE [Concomitant]
  8. OMEPRAZOLE [Concomitant]
  9. CLONAZEPAM [Concomitant]

REACTIONS (1)
  - DEEP VEIN THROMBOSIS [None]
